FAERS Safety Report 24198517 (Version 3)
Quarter: 2024Q3

REPORT INFORMATION
  Report Type: Spontaneous
  Country: BG (occurrence: BG)
  Receive Date: 20240812
  Receipt Date: 20240904
  Transmission Date: 20241017
  Serious: Yes (Death, Life-Threatening, Hospitalization, Other)
  Sender: UCB
  Company Number: BG-UCBSA-2024038242

PATIENT
  Age: 5 Year
  Sex: Male

DRUGS (4)
  1. FINTEPLA [Suspect]
     Active Substance: FENFLURAMINE
     Indication: Lennox-Gastaut syndrome
     Dosage: 0.3 MILLILITER, 2X/DAY (BID)/THE DOSE TAKEN BY THE CHILD IS 2 X 0.3 ML (0.66 MG) FINTEPLA 2.2 MG/ML
     Route: 048
     Dates: start: 20240714
  2. LEVETIRACETAM [Concomitant]
     Active Substance: LEVETIRACETAM
     Indication: Epilepsy
     Dosage: 2-2-3 ML, UNIT: MG, 3X/DAY (TID), 3 DOSE RECEIVED
     Route: 048
  3. CLOBAZAM [Concomitant]
     Active Substance: CLOBAZAM
     Indication: Epilepsy
     Dosage: 7.5 MILLIGRAM, 2X/DAY (BID)
     Route: 048
  4. VALPROIC ACID [Concomitant]
     Active Substance: VALPROIC ACID
     Indication: Epilepsy
     Dosage: 5-2-7 ML, UNIT:MG, TOTAL 3 DOSE RECEIVED
     Route: 048

REACTIONS (5)
  - Epilepsy [Fatal]
  - Pneumonia [Fatal]
  - Brain oedema [Fatal]
  - Nervous system disorder [Fatal]
  - Pulmonary oedema [Fatal]

NARRATIVE: CASE EVENT DATE: 20240701
